FAERS Safety Report 9844075 (Version 1)
Quarter: 2014Q1

REPORT INFORMATION
  Report Type: Report from Study
  Country: FR (occurrence: FR)
  Receive Date: 20140127
  Receipt Date: 20140127
  Transmission Date: 20141002
  Serious: Yes (Hospitalization)
  Sender: FDA-Public Use
  Company Number: FR-ROCHE-1334825

PATIENT
  Age: 76 Year
  Sex: Male
  Weight: 76 kg

DRUGS (6)
  1. RITUXIMAB [Suspect]
     Indication: ANTI-NEUTROPHIL CYTOPLASMIC ANTIBODY POSITIVE VASCULITIS
     Dosage: DAY 1 AND DAY 15 (17/MAY/2013)
     Route: 041
     Dates: start: 20130503
  2. PREDNISONE [Suspect]
     Indication: ANTI-NEUTROPHIL CYTOPLASMIC ANTIBODY POSITIVE VASCULITIS
     Dosage: DAILY
     Route: 048
     Dates: start: 20130422
  3. BACTRIM [Concomitant]
     Route: 048
     Dates: start: 20130110
  4. TRIATEC (FRANCE) [Concomitant]
     Route: 048
     Dates: start: 20071129
  5. FLECAINE [Concomitant]
     Indication: PALPITATIONS
     Route: 048
     Dates: start: 20120123
  6. XATRAL [Concomitant]
     Route: 048

REACTIONS (2)
  - Sciatica [Recovered/Resolved]
  - Herpes zoster [Recovered/Resolved]
